FAERS Safety Report 7687245-2 (Version None)
Quarter: 2011Q3

REPORT INFORMATION
  Report Type: 
  Country: None (occurrence: None)
  Receive Date: 20110816
  Receipt Date: 20110810
  Transmission Date: 20111222
  Serious: Yes (Other)
  Sender: FDA-Public Use
  Company Number: GB-ALLERGAN-1110735US

PATIENT
  Age: 69 Year
  Sex: Male

DRUGS (1)
  1. BOTULINUM TOXIN TYPE A [Suspect]
     Indication: BLEPHAROSPASM
     Dosage: UNK

REACTIONS (3)
  - FEELING HOT [None]
  - PYREXIA [None]
  - CIRCULATORY COLLAPSE [None]
